FAERS Safety Report 9592712 (Version 1)
Quarter: 2013Q3

REPORT INFORMATION
  Report Type: Spontaneous
  Country: US (occurrence: None)
  Receive Date: 20130930
  Receipt Date: 20130930
  Transmission Date: 20140515
  Serious: No
  Sender: FDA-Public Use
  Company Number: 1000045881

PATIENT
  Age: 66 Year
  Sex: Female

DRUGS (17)
  1. LINZESS [Suspect]
     Indication: CONSTIPATION
     Dosage: 145MCG (145 MCG, 1 IN 1 D), ORAL
     Route: 048
     Dates: start: 20130604
  2. VIVELLE DOT (ESTRADIOL) (ESTRADIOL) [Concomitant]
  3. RISPERDAL (RISPERIDONE) (RISPERIDONE) [Concomitant]
  4. WELLBUTRIN (BUPROPION HYDROCHLORIDE) (BUPROPION HYDROCHLORIDE) [Concomitant]
  5. NEURONTIN (GABAPENTIN) (GABAPENTIN) [Concomitant]
  6. CLARITIN (LORATADINE) (LORATADINE) [Concomitant]
  7. PROBIOTICS (PROBIOTICS) (PROBIOTICS) [Concomitant]
  8. DESYREL (TRAZODONE HYDROCHLORIDE) (TRAZODONE) [Concomitant]
  9. LODINE (ETODOLAC) (ETODOLAC) [Concomitant]
  10. METANX (CALCIUM MEFOLINATE W/PYRIDOXINE HYDROCHLORIDE) (CALCIUM MEFOLINATE W/ PYRIDOXINE HYDROCHLORIDE)? [Concomitant]
  11. ZANTAC (RANITIDINE HYDROCHLORIDE) (RANITIDINE HYDROCHLORIDE) [Concomitant]
  12. NEXIUM (ESOMEPRAZOLE) (ESOMEPRAZOLE) [Concomitant]
  13. ALPHAGAN P (BRIMONIDINE TARTRATE) (BRIMONIDINE TARTRATE) [Concomitant]
  14. TRAVATIN Z (TRAVOPROST) (TRAVOPROST) [Concomitant]
  15. MTV (VITAMINS NOS) (VITAMINS NOS) [Concomitant]
  16. CALCIUM (CALCIUM) (CALCIUM) [Concomitant]
  17. MAGNESIUM (MAGNESIUM) (MAGNESIUM) [Concomitant]

REACTIONS (1)
  - Drug ineffective [None]
